FAERS Safety Report 5118979-1 (Version None)
Quarter: 2006Q3

REPORT INFORMATION
  Report Type: 
  Country: None (occurrence: None)
  Receive Date: 20060927
  Receipt Date: 20060912
  Transmission Date: 20061208
  Serious: Yes (Hospitalization)
  Sender: FDA-Public Use
  Company Number: 224798

PATIENT
  Age: 70 Year
  Sex: Male

DRUGS (6)
  1. RAPTIVA [Suspect]
     Indication: PSORIASIS
     Dosage: 100 MG, 1 WEEK, SUBCUTANEOUS
     Route: 058
     Dates: start: 20051103, end: 20060103
  2. PLENDIL [Concomitant]
  3. LIPITOR [Concomitant]
  4. ALBYL-E (ASPIRIN, MAGNESIUM OXIDE) [Concomitant]
  5. IBUMETIN (IBUPROFEN) [Concomitant]
  6. METOPROLOL SUCCINATE [Concomitant]

REACTIONS (2)
  - MILLER FISHER SYNDROME [None]
  - NASOPHARYNGITIS [None]
